FAERS Safety Report 9628002 (Version 2)
Quarter: 2013Q4

REPORT INFORMATION
  Report Type: Spontaneous
  Country: US (occurrence: US)
  Receive Date: 20131016
  Receipt Date: 20131016
  Transmission Date: 20140711
  Serious: Yes (Other)
  Sender: FDA-Public Use
  Company Number: US-PFIZER INC-US-WYE-H12240009

PATIENT
  Age: 65 Year
  Sex: Female
  Weight: 108 kg

DRUGS (15)
  1. ENBREL [Suspect]
     Indication: RHEUMATOID ARTHRITIS
     Dosage: 50.0 MG, WEEKLY
     Route: 058
     Dates: start: 20021202
  2. LIPITOR [Suspect]
     Dosage: UNK
  3. MORPHINE SULFATE [Suspect]
  4. LEVOFLOXACIN [Suspect]
  5. ACETYLSALICYLIC ACID [Concomitant]
     Route: 065
  6. ATENOLOL [Concomitant]
  7. CITRACAL [Concomitant]
     Route: 065
  8. ERGOCALCIFEROL [Concomitant]
     Route: 065
  9. NEXIUM [Concomitant]
     Route: 065
  10. SLOW-FE [Concomitant]
     Route: 065
  11. FISH OIL [Concomitant]
     Route: 065
  12. FOLIC ACID [Concomitant]
     Route: 065
  13. FUROSEMIDE [Concomitant]
     Route: 065
  14. LISINOPRIL [Concomitant]
     Route: 065
  15. MULTIVITAMINS WITH MINERALS [Concomitant]
     Route: 065

REACTIONS (11)
  - Palpitations [Unknown]
  - Large granular lymphocytosis [Not Recovered/Not Resolved]
  - Pancytopenia [Not Recovered/Not Resolved]
  - Fluid overload [Unknown]
  - Heart rate decreased [Unknown]
  - Upper respiratory tract infection [Unknown]
  - Oedema peripheral [Unknown]
  - Drug hypersensitivity [Unknown]
  - Pruritus [Unknown]
  - Myalgia [Unknown]
  - Urticaria [Unknown]
